FAERS Safety Report 8449159-X (Version None)
Quarter: 2012Q2

REPORT INFORMATION
  Report Type: 
  Country: None (occurrence: None)
  Receive Date: 20120619
  Receipt Date: 20120608
  Transmission Date: 20120825
  Serious: Yes (Death)
  Sender: FDA-Public Use
  Company Number: TN-SANOFI-AVENTIS-2012SA041300

PATIENT
  Age: 70 Year
  Sex: Male

DRUGS (5)
  1. PLAVIX [Suspect]
     Indication: ACUTE CORONARY SYNDROME
     Route: 048
     Dates: start: 20120103, end: 20120512
  2. ASPEGIC 1000 [Suspect]
     Indication: ACUTE CORONARY SYNDROME
     Route: 048
     Dates: end: 20120512
  3. LASIX [Concomitant]
     Indication: HYPERTENSION
     Route: 048
     Dates: end: 20120512
  4. RAMIPRIL [Concomitant]
     Indication: HYPERTENSION
     Route: 048
     Dates: end: 20120512
  5. ATORVASTATIN [Concomitant]
     Route: 048
     Dates: end: 20120512

REACTIONS (1)
  - CARDIAC FAILURE [None]
